FAERS Safety Report 9674583 (Version 1)
Quarter: 2013Q4

REPORT INFORMATION
  Report Type: Spontaneous
  Country: CA (occurrence: CA)
  Receive Date: 20131107
  Receipt Date: 20131107
  Transmission Date: 20140711
  Serious: Yes (Hospitalization)
  Sender: FDA-Public Use
  Company Number: CA-ROCHE-1296633

PATIENT
  Age: 46 Year
  Sex: Male
  Weight: 85 kg

DRUGS (80)
  1. MYCOPHENOLATE MOFETIL [Suspect]
     Indication: PRODUCT USED FOR UNKNOWN INDICATION
     Dosage: THERAPY DURATION:  1 DAY
     Route: 065
  2. MYCOPHENOLATE MOFETIL [Suspect]
     Dosage: THERAPY DURATION:  1 DAY
     Route: 065
  3. MYCOPHENOLATE MOFETIL [Suspect]
     Dosage: THERAPY DURATION:  1 DAY
     Route: 048
  4. MYCOPHENOLATE MOFETIL [Suspect]
     Dosage: THERAPY DURATION:  1 DAY
     Route: 065
  5. MYCOPHENOLATE MOFETIL [Suspect]
     Dosage: THERAPY DURATION:  1 DAY
     Route: 048
  6. MYCOPHENOLATE MOFETIL [Suspect]
     Route: 042
  7. MYCOPHENOLATE MOFETIL [Suspect]
     Route: 048
  8. MYCOPHENOLATE MOFETIL [Suspect]
     Dosage: THERAPY DURATION:  1 DAY
     Route: 042
  9. MYCOPHENOLATE MOFETIL [Suspect]
     Route: 065
  10. MYCOPHENOLATE MOFETIL [Suspect]
     Dosage: THERAPY DURATION:  1 DAY
     Route: 065
  11. MYCOPHENOLATE MOFETIL [Suspect]
     Dosage: THERAPY DURATION:  1 DAY
     Route: 065
  12. MYCOPHENOLATE MOFETIL [Suspect]
     Dosage: THERAPY DURATION:  1 DAY
     Route: 042
  13. MYCOPHENOLATE MOFETIL [Suspect]
     Dosage: THERAPY DURATION:  1 DAY
     Route: 065
  14. MYCOPHENOLATE MOFETIL [Suspect]
     Route: 048
  15. MYCOPHENOLATE MOFETIL [Suspect]
     Route: 048
  16. MYCOPHENOLATE MOFETIL [Suspect]
     Route: 048
  17. MYCOPHENOLATE MOFETIL [Suspect]
     Dosage: THERAPY DURATION:  1 DAY
     Route: 048
  18. MYCOPHENOLATE MOFETIL [Suspect]
     Route: 048
  19. MYCOPHENOLATE MOFETIL [Suspect]
     Route: 048
  20. MYCOPHENOLATE MOFETIL [Suspect]
     Route: 048
  21. MYCOPHENOLATE MOFETIL [Suspect]
     Route: 048
  22. MYCOPHENOLATE MOFETIL [Suspect]
     Dosage: THERAPY DURATION:  1 DAY
     Route: 065
  23. MYCOPHENOLATE MOFETIL [Suspect]
     Dosage: THERAPY DURATION:  1 DAY
     Route: 065
  24. HYDROCORTISONE [Suspect]
     Indication: PRODUCT USED FOR UNKNOWN INDICATION
     Route: 065
  25. METHYLPREDNISOLONE SODIUM SUCCINATE [Suspect]
     Indication: PRODUCT USED FOR UNKNOWN INDICATION
     Dosage: THERAPY DURATION:  1.0 DAY
     Route: 042
  26. METHYLPREDNISOLONE SODIUM SUCCINATE [Suspect]
     Dosage: THERAPY DURATION:  1.0 DAY
     Route: 042
  27. METHYLPREDNISOLONE SODIUM SUCCINATE [Suspect]
     Dosage: THERAPY DURATION:  1.0 DAY
     Route: 042
  28. METHYLPREDNISOLONE SODIUM SUCCINATE [Suspect]
     Dosage: THERAPY DURATION:  2.0 DAYS
     Route: 042
  29. METHYLPREDNISOLONE SODIUM SUCCINATE [Suspect]
     Route: 048
  30. METHYLPREDNISOLONE SODIUM SUCCINATE [Suspect]
     Dosage: THERAPY DURATION:  1.0 DAY
     Route: 042
  31. METHYLPREDNISOLONE SODIUM SUCCINATE [Suspect]
     Dosage: THERAPY DURATION:  1.0 DAY
     Route: 042
  32. METHYLPREDNISOLONE SODIUM SUCCINATE [Suspect]
     Dosage: THERAPY DURATION:  1.0 DAY
     Route: 042
  33. METHYLPREDNISOLONE SODIUM SUCCINATE [Suspect]
     Route: 048
  34. METHYLPREDNISOLONE SODIUM SUCCINATE [Suspect]
     Dosage: THERAPY DURATION:  1.0 DAY
     Route: 042
  35. RAPAMUNE [Suspect]
     Indication: PRODUCT USED FOR UNKNOWN INDICATION
     Route: 065
  36. TACROLIMUS [Suspect]
     Indication: PRODUCT USED FOR UNKNOWN INDICATION
     Dosage: CAPSULES
     Route: 065
  37. PREDNISONE [Suspect]
     Indication: PRODUCT USED FOR UNKNOWN INDICATION
     Route: 048
  38. PREDNISONE [Suspect]
     Route: 048
  39. PREDNISONE [Suspect]
     Dosage: THERAPY DURATION: 1.0 DAY
     Route: 048
  40. PREDNISONE [Suspect]
     Dosage: THERAPY DURATION: 1.0 DAY
     Route: 048
  41. PREDNISONE [Suspect]
     Route: 048
  42. PREDNISONE [Suspect]
     Dosage: THERAPY DURATION: 1.0 DAY
     Route: 048
  43. PREDNISONE [Suspect]
     Route: 048
  44. PREDNISONE [Suspect]
     Route: 048
  45. PREDNISONE [Suspect]
     Route: 048
  46. CYCLOSPORINE [Suspect]
     Indication: PRODUCT USED FOR UNKNOWN INDICATION
     Dosage: THERAPY DURATION: 4.0 DAYS
     Route: 048
  47. CYCLOSPORINE [Suspect]
     Route: 048
  48. CYCLOSPORINE [Suspect]
     Route: 048
  49. CYCLOSPORINE [Suspect]
     Route: 048
  50. CYCLOSPORINE [Suspect]
     Route: 048
  51. CYCLOSPORINE [Suspect]
     Dosage: THERAPY DURATION: 3.0 DAYS
     Route: 065
  52. CYCLOSPORINE [Suspect]
     Dosage: THERAPY DURATION: 2.0 DAYS
     Route: 065
  53. CYCLOSPORINE [Suspect]
     Dosage: THERAPY DURATION: 1.0 DAY
     Route: 048
  54. CYCLOSPORINE [Suspect]
     Route: 048
  55. CYCLOSPORINE [Suspect]
     Dosage: THERAPY DURATION: 1.0 DAY
     Route: 048
  56. CYCLOSPORINE [Suspect]
     Dosage: THERAPY DURATION: 5.0 DAY
     Route: 048
  57. CYCLOSPORINE [Suspect]
     Route: 048
  58. CYCLOSPORINE [Suspect]
     Route: 048
  59. CYCLOSPORINE [Suspect]
     Route: 048
  60. CYCLOSPORINE [Suspect]
     Route: 048
  61. ACEBUTOLOL [Concomitant]
     Dosage: TABLET
     Route: 065
  62. ACETAMINOPHEN [Concomitant]
  63. BUPIVACAINE [Concomitant]
     Dosage: SOLUTUION BLOCK/INFILTRATION
     Route: 065
  64. ENALAPRIL [Concomitant]
     Dosage: TABLET
     Route: 065
  65. FAMOTIDINE [Concomitant]
  66. FOLIC ACID [Concomitant]
  67. FUROSEMIDE [Concomitant]
  68. HEPARIN, PORCINE [Concomitant]
  69. INSULIN HUMAN [Concomitant]
  70. LORAZEPAM [Concomitant]
  71. MAGNESIUM SULFATE [Concomitant]
  72. METOCLOPRAMIDE [Concomitant]
  73. MORPHINE [Concomitant]
  74. MYCOSTATIN [Concomitant]
  75. OXYCODONE [Concomitant]
  76. RANITIDINE [Concomitant]
  77. RISEDRONATE SODIUM [Concomitant]
  78. SODIUM PHOSPHATE [Concomitant]
     Dosage: SOLUTION
     Route: 065
  79. SODIUM POLYSTYRENE SULFONATE [Concomitant]
  80. SEPTRA [Concomitant]

REACTIONS (3)
  - Hydronephrosis [Not Recovered/Not Resolved]
  - Leukopenia [Not Recovered/Not Resolved]
  - Ureteric stenosis [Not Recovered/Not Resolved]
